APPROVED DRUG PRODUCT: MIOCHOL-E
Active Ingredient: ACETYLCHOLINE CHLORIDE
Strength: 20MG/VIAL
Dosage Form/Route: FOR SOLUTION;OPHTHALMIC
Application: N020213 | Product #001
Applicant: BAUSCH AND LOMB INC
Approved: Sep 22, 1993 | RLD: Yes | RS: Yes | Type: RX